FAERS Safety Report 9385933 (Version 2)
Quarter: 2013Q3

REPORT INFORMATION
  Report Type: Report from Study
  Country: BR (occurrence: BR)
  Receive Date: 20130705
  Receipt Date: 20130718
  Transmission Date: 20140515
  Serious: Yes (Hospitalization)
  Sender: FDA-Public Use
  Company Number: BR-ABBOTT-13P-020-1113587-00

PATIENT
  Age: 43 Year
  Sex: Female
  Weight: 60 kg

DRUGS (8)
  1. HUMIRA [Suspect]
     Indication: RHEUMATOID ARTHRITIS
     Route: 058
     Dates: start: 201303, end: 201305
  2. HUMIRA [Suspect]
     Route: 058
     Dates: start: 201306
  3. TECNOMET [Concomitant]
     Indication: RHEUMATOID ARTHRITIS
     Route: 048
     Dates: start: 201301
  4. PANTOPRAZOLE [Concomitant]
     Indication: GASTRIC DISORDER
     Route: 048
     Dates: start: 2000
  5. PREDNISONE [Concomitant]
     Indication: RHEUMATOID ARTHRITIS
     Route: 048
     Dates: start: 2000
  6. NPH INSULIN [Concomitant]
     Indication: DIABETES MELLITUS
     Route: 050
     Dates: start: 201302
  7. NPH INSULIN [Concomitant]
     Route: 050
     Dates: start: 201302
  8. INSULIN, REGULAR [Concomitant]
     Indication: DIABETES MELLITUS
     Route: 050
     Dates: start: 201302

REACTIONS (3)
  - Phlebitis [Unknown]
  - Localised infection [Unknown]
  - Cellulitis [Unknown]
